FAERS Safety Report 25030914 (Version 1)
Quarter: 2025Q1

REPORT INFORMATION
  Report Type: Spontaneous
  Country: ES (occurrence: ES)
  Receive Date: 20250303
  Receipt Date: 20250303
  Transmission Date: 20250409
  Serious: Yes (Hospitalization, Other)
  Sender: MYLAN
  Company Number: None

PATIENT
  Age: 67 Year
  Sex: Female
  Weight: 60 kg

DRUGS (24)
  1. VENLAFAXINE [Interacting]
     Active Substance: VENLAFAXINE HYDROCHLORIDE
     Indication: Depression
  2. VENLAFAXINE [Interacting]
     Active Substance: VENLAFAXINE HYDROCHLORIDE
     Route: 048
  3. VENLAFAXINE [Interacting]
     Active Substance: VENLAFAXINE HYDROCHLORIDE
     Route: 048
  4. VENLAFAXINE [Interacting]
     Active Substance: VENLAFAXINE HYDROCHLORIDE
  5. MIRTAZAPINE [Interacting]
     Active Substance: MIRTAZAPINE
     Indication: Depression
  6. MIRTAZAPINE [Interacting]
     Active Substance: MIRTAZAPINE
     Route: 048
  7. MIRTAZAPINE [Interacting]
     Active Substance: MIRTAZAPINE
     Route: 048
  8. MIRTAZAPINE [Interacting]
     Active Substance: MIRTAZAPINE
  9. BROMAZEPAM [Interacting]
     Active Substance: BROMAZEPAM
     Indication: Depression
  10. BROMAZEPAM [Interacting]
     Active Substance: BROMAZEPAM
     Route: 048
  11. BROMAZEPAM [Interacting]
     Active Substance: BROMAZEPAM
     Route: 048
  12. BROMAZEPAM [Interacting]
     Active Substance: BROMAZEPAM
  13. DIAZEPAM [Interacting]
     Active Substance: DIAZEPAM
     Indication: Depression
  14. DIAZEPAM [Interacting]
     Active Substance: DIAZEPAM
     Route: 048
  15. DIAZEPAM [Interacting]
     Active Substance: DIAZEPAM
     Route: 048
  16. DIAZEPAM [Interacting]
     Active Substance: DIAZEPAM
  17. SULPIRIDE [Interacting]
     Active Substance: SULPIRIDE
     Indication: Depression
  18. SULPIRIDE [Interacting]
     Active Substance: SULPIRIDE
     Route: 048
  19. SULPIRIDE [Interacting]
     Active Substance: SULPIRIDE
     Route: 048
  20. SULPIRIDE [Interacting]
     Active Substance: SULPIRIDE
  21. LORAZEPAM [Interacting]
     Active Substance: LORAZEPAM
     Indication: Depression
  22. LORAZEPAM [Interacting]
     Active Substance: LORAZEPAM
     Route: 048
  23. LORAZEPAM [Interacting]
     Active Substance: LORAZEPAM
     Route: 048
  24. LORAZEPAM [Interacting]
     Active Substance: LORAZEPAM

REACTIONS (2)
  - Hip fracture [Recovering/Resolving]
  - Drug interaction [Recovering/Resolving]

NARRATIVE: CASE EVENT DATE: 20250128
